FAERS Safety Report 14832881 (Version 1)
Quarter: 2018Q2

REPORT INFORMATION
  Report Type: Spontaneous
  Country: DE (occurrence: DE)
  Receive Date: 20180501
  Receipt Date: 20180501
  Transmission Date: 20180711
  Serious: Yes (Other)
  Sender: FDA-Public Use
  Company Number: PHHY2017DE202641

PATIENT
  Age: 52 Year
  Sex: Male

DRUGS (4)
  1. METFORMIN [Suspect]
     Active Substance: METFORMIN HYDROCHLORIDE
     Indication: PRODUCT USED FOR UNKNOWN INDICATION
     Dosage: 2000 MG, QD
     Route: 065
     Dates: end: 20171105
  2. METFORMIN [Interacting]
     Active Substance: METFORMIN HYDROCHLORIDE
     Dosage: 2000 MG, QD
     Route: 065
     Dates: start: 20171116
  3. SPASMEX (TROSPIUM CHLORIDE) [Interacting]
     Active Substance: TROSPIUM CHLORIDE
     Indication: BLADDER DYSFUNCTION
     Dosage: UNK
     Route: 065
  4. BETMIGA [Interacting]
     Active Substance: MIRABEGRON
     Indication: BLADDER DYSFUNCTION
     Dosage: 50 MG, QD
     Route: 065
     Dates: start: 201710, end: 201711

REACTIONS (4)
  - Intentional product misuse [Unknown]
  - Drug interaction [Unknown]
  - Blood glucose fluctuation [Recovered/Resolved]
  - Drug ineffective [Unknown]

NARRATIVE: CASE EVENT DATE: 20171106
